FAERS Safety Report 4871622-9 (Version None)
Quarter: 2006Q1

REPORT INFORMATION
  Report Type: 
  Country: None (occurrence: None)
  Receive Date: 20060104
  Receipt Date: 20051228
  Transmission Date: 20060701
  Serious: Yes (Hospitalization)
  Sender: FDA-Public Use
  Company Number: FR-AVENTIS-200514446FR

PATIENT
  Age: 79 Year
  Sex: Female

DRUGS (8)
  1. LASILIX [Suspect]
     Indication: MITRAL VALVE DISEASE
     Route: 048
  2. LASILIX [Suspect]
     Route: 042
     Dates: start: 20050621, end: 20050626
  3. LASILIX [Suspect]
     Indication: CARDIAC FAILURE
     Route: 048
  4. LASILIX [Suspect]
     Route: 042
     Dates: start: 20050621, end: 20050626
  5. TRIATEC [Suspect]
     Indication: MITRAL VALVE DISEASE
     Route: 048
     Dates: end: 20050626
  6. STILNOX [Concomitant]
     Indication: SLEEP DISORDER
     Route: 048
  7. PREVISCAN [Concomitant]
     Indication: MITRAL VALVE DISEASE
     Route: 048
  8. DAFLON [Concomitant]
     Indication: VARICOSE VEIN
     Route: 048
     Dates: end: 20050626

REACTIONS (2)
  - DRUG INTERACTION [None]
  - RENAL FAILURE ACUTE [None]
